FAERS Safety Report 10794125 (Version 2)
Quarter: 2015Q1

REPORT INFORMATION
  Report Type: Spontaneous
  Country: JP (occurrence: JP)
  Receive Date: 20150213
  Receipt Date: 20150303
  Transmission Date: 20150721
  Serious: Yes (Hospitalization)
  Sender: FDA-Public Use
  Company Number: JP-ALLERGAN-1502740US

PATIENT
  Age: 35 Year
  Sex: Female

DRUGS (1)
  1. GATIFLO [Suspect]
     Active Substance: GATIFLOXACIN
     Indication: ENDOPHTHALMITIS
     Dosage: 2 GTT, QID
     Route: 047

REACTIONS (6)
  - Vision blurred [Unknown]
  - Off label use [Unknown]
  - Macular oedema [Unknown]
  - Mycotic endophthalmitis [Unknown]
  - Vitreous opacities [Unknown]
  - Conjunctival hyperaemia [Unknown]
